FAERS Safety Report 10053717 (Version 4)
Quarter: 2014Q2

REPORT INFORMATION
  Report Type: Spontaneous
  Country: GB (occurrence: GB)
  Receive Date: 20140402
  Receipt Date: 20140420
  Transmission Date: 20141212
  Serious: Yes (Hospitalization)
  Sender: FDA-Public Use
  Company Number: PHFR2014GB002106

PATIENT
  Age: 70 Year
  Sex: Female

DRUGS (4)
  1. SANDOSTATIN LAR [Suspect]
     Indication: NEUROENDOCRINE TUMOUR
     Dosage: UNK UKN, UNK
  2. SANDOSTATIN LAR [Suspect]
     Indication: DIARRHOEA
     Dosage: 30 MG
     Route: 058
  3. SANDOSTATIN LAR [Suspect]
     Indication: FLUSHING
  4. SANDOSTATIN (OCTREOTIDE ACETATE) [Suspect]
     Dosage: UNK UKN, UNK
     Route: 058

REACTIONS (4)
  - Femur fracture [Recovering/Resolving]
  - Pathological fracture [Recovering/Resolving]
  - Incorrect route of drug administration [Not Recovered/Not Resolved]
  - Drug ineffective [Unknown]
